FAERS Safety Report 23601139 (Version 1)
Quarter: 2024Q1

REPORT INFORMATION
  Report Type: Spontaneous
  Country: CA (occurrence: CA)
  Receive Date: 20240306
  Receipt Date: 20240306
  Transmission Date: 20240409
  Serious: Yes (Other)
  Sender: FDA-Public Use
  Company Number: CA-PFIZER INC-202400057464

PATIENT
  Age: 38 Year
  Sex: Female

DRUGS (2)
  1. IRINOTECAN HYDROCHLORIDE [Suspect]
     Active Substance: IRINOTECAN HYDROCHLORIDE
     Indication: Colon cancer stage IV
     Route: 065
  2. OXALIPLATIN [Concomitant]
     Active Substance: OXALIPLATIN

REACTIONS (6)
  - Dyspnoea [Unknown]
  - Flushing [Unknown]
  - Hypoaesthesia [Unknown]
  - Hypotension [Unknown]
  - Nausea [Unknown]
  - Vomiting [Unknown]
